FAERS Safety Report 16077466 (Version 8)
Quarter: 2020Q3

REPORT INFORMATION
  Report Type: Other
  Country: US (occurrence: US)
  Receive Date: 20190315
  Receipt Date: 20200909
  Transmission Date: 20201102
  Serious: Yes (Other)
  Sender: FDA-Public Use
  Company Number: US-ROCHE-2283169

PATIENT
  Age: 47 Year
  Sex: Male
  Weight: 93.07 kg

DRUGS (21)
  1. OCREVUS [Suspect]
     Active Substance: OCRELIZUMAB
     Indication: MULTIPLE SCLEROSIS
     Dosage: HALF DOSE ;ONGOING: NO?SUBSEQUENT HALF DOSE ON: MAY/2018
     Route: 065
     Dates: start: 20180517, end: 20180531
  2. OCREVUS [Suspect]
     Active Substance: OCRELIZUMAB
     Indication: RELAPSING MULTIPLE SCLEROSIS
     Dosage: ONGOING: NO
     Route: 065
     Dates: start: 201805
  3. OCREVUS [Suspect]
     Active Substance: OCRELIZUMAB
     Dosage: ONGOING YES
     Route: 042
  4. NICOTINIC ACID [Concomitant]
     Active Substance: NIACIN
     Dosage: 2 OR 3 TIMES DAILY
  5. OCREVUS [Suspect]
     Active Substance: OCRELIZUMAB
     Dosage: FULL DOSE ;ONGOING: YES
     Route: 065
     Dates: start: 20190109
  6. OCREVUS [Suspect]
     Active Substance: OCRELIZUMAB
     Route: 042
  7. VYVANSE [Concomitant]
     Active Substance: LISDEXAMFETAMINE DIMESYLATE
     Dates: start: 2018
  8. ADDERALL [Concomitant]
     Active Substance: AMPHETAMINE ASPARTATE\AMPHETAMINE SULFATE\DEXTROAMPHETAMINE SACCHARATE\DEXTROAMPHETAMINE SULFATE
     Dates: start: 2018
  9. BACLOFEN. [Concomitant]
     Active Substance: BACLOFEN
     Indication: MUSCLE SPASMS
  10. OCREVUS [Suspect]
     Active Substance: OCRELIZUMAB
     Route: 065
     Dates: start: 20190705
  11. METAXALONE. [Suspect]
     Active Substance: METAXALONE
     Route: 065
  12. ADDERALL [Concomitant]
     Active Substance: AMPHETAMINE ASPARTATE\AMPHETAMINE SULFATE\DEXTROAMPHETAMINE SACCHARATE\DEXTROAMPHETAMINE SULFATE
     Dosage: ONGOING NO
  13. BACLOFEN. [Concomitant]
     Active Substance: BACLOFEN
     Indication: MUSCLE SPASMS
     Dosage: ONGOING YES, UP TO 60 MG PER DAY
  14. METAXALONE. [Suspect]
     Active Substance: METAXALONE
     Indication: NEURALGIA
     Route: 065
  15. ADDERALL [Concomitant]
     Active Substance: AMPHETAMINE ASPARTATE\AMPHETAMINE SULFATE\DEXTROAMPHETAMINE SACCHARATE\DEXTROAMPHETAMINE SULFATE
     Dosage: ONGOING NO
  16. MODAFINIL. [Concomitant]
     Active Substance: MODAFINIL
     Dates: start: 20200806
  17. OCREVUS [Suspect]
     Active Substance: OCRELIZUMAB
     Dosage: 2 DOSES , ONGOING : NO
     Route: 042
     Dates: start: 201805
  18. VYVANSE [Concomitant]
     Active Substance: LISDEXAMFETAMINE DIMESYLATE
     Indication: FATIGUE
  19. ADDERALL [Concomitant]
     Active Substance: AMPHETAMINE ASPARTATE\AMPHETAMINE SULFATE\DEXTROAMPHETAMINE SACCHARATE\DEXTROAMPHETAMINE SULFATE
     Indication: FATIGUE
  20. DIAZEPAM. [Concomitant]
     Active Substance: DIAZEPAM
     Indication: MUSCLE SPASMS
  21. DIAZEPAM. [Concomitant]
     Active Substance: DIAZEPAM
     Indication: MUSCLE SPASMS

REACTIONS (31)
  - Visual impairment [Recovered/Resolved]
  - Nystagmus [Unknown]
  - Areflexia [Not Recovered/Not Resolved]
  - Pain in extremity [Not Recovered/Not Resolved]
  - Gait disturbance [Not Recovered/Not Resolved]
  - Depression [Unknown]
  - Skin laceration [Not Recovered/Not Resolved]
  - Localised infection [Unknown]
  - Miliaria [Recovered/Resolved]
  - Cellulitis [Recovered/Resolved]
  - Headache [Recovered/Resolved]
  - Fall [Unknown]
  - Paranoia [Recovered/Resolved]
  - Muscle rigidity [Recovered/Resolved]
  - Rash [Unknown]
  - Retching [Not Recovered/Not Resolved]
  - Tetanus [Recovered/Resolved]
  - Disturbance in attention [Not Recovered/Not Resolved]
  - Amnesia [Not Recovered/Not Resolved]
  - Neuralgia [Unknown]
  - Multiple sclerosis [Not Recovered/Not Resolved]
  - Paraesthesia [Unknown]
  - Nasal congestion [Not Recovered/Not Resolved]
  - Pain [Recovered/Resolved]
  - Nausea [Recovered/Resolved]
  - Psychotic disorder [Recovered/Resolved]
  - Pyrexia [Recovered/Resolved]
  - Aphasia [Not Recovered/Not Resolved]
  - Feeling jittery [Unknown]
  - Back pain [Recovered/Resolved]
  - Pruritus [Recovered/Resolved]

NARRATIVE: CASE EVENT DATE: 20190223
